FAERS Safety Report 15320678 (Version 2)
Quarter: 2018Q3

REPORT INFORMATION
  Report Type: Spontaneous
  Country: GB (occurrence: GB)
  Receive Date: 20180827
  Receipt Date: 20180827
  Transmission Date: 20181010
  Serious: Yes (Other)
  Sender: FDA-Public Use
  Company Number: PHHY2012GB084635

PATIENT
  Age: 61 Year
  Sex: Male

DRUGS (9)
  1. TRIAMCINOLONE [Suspect]
     Active Substance: TRIAMCINOLONE
     Indication: MUSCULOSKELETAL STIFFNESS
     Dosage: UNK
     Route: 065
  2. DEPOMEDRONE [Suspect]
     Active Substance: METHYLPREDNISOLONE ACETATE
     Indication: ARTHRALGIA
     Dosage: UNK
     Route: 030
  3. CICLOSPORIN [Suspect]
     Active Substance: CYCLOSPORINE
     Indication: RENAL TRANSPLANT
     Dosage: 100 MG, QD
     Route: 065
  4. TRIAMCINOLONE [Suspect]
     Active Substance: TRIAMCINOLONE
     Indication: ARTHRALGIA
  5. AZATHIOPRINE. [Suspect]
     Active Substance: AZATHIOPRINE
     Indication: IMMUNOSUPPRESSION
     Dosage: UNK
     Route: 065
  6. CICLOSPORIN [Suspect]
     Active Substance: CYCLOSPORINE
     Dosage: 200 MG, QD
     Route: 065
  7. PREDNISOLONE. [Suspect]
     Active Substance: PREDNISOLONE
     Indication: RENAL TRANSPLANT
     Dosage: 5 MG, QD
     Route: 065
  8. PREDNISOLONE. [Suspect]
     Active Substance: PREDNISOLONE
     Indication: IMMUNOSUPPRESSANT DRUG THERAPY
     Dosage: 10 MG, QD
     Route: 065
  9. PREDNISOLONE. [Suspect]
     Active Substance: PREDNISOLONE
     Dosage: 5 MG, QD
     Route: 065

REACTIONS (15)
  - Weight decreased [Recovered/Resolved]
  - Swelling [Recovering/Resolving]
  - Pain [Recovering/Resolving]
  - Tendon rupture [Recovering/Resolving]
  - Tenosynovitis [Recovering/Resolving]
  - Mycobacterium kansasii infection [Recovering/Resolving]
  - Musculoskeletal stiffness [Recovering/Resolving]
  - Immunosuppressant drug level decreased [Recovered/Resolved]
  - Optic neuritis [Not Recovered/Not Resolved]
  - Visual acuity reduced [Not Recovered/Not Resolved]
  - Infective tenosynovitis [Unknown]
  - Cellulitis [Recovering/Resolving]
  - Joint swelling [Recovering/Resolving]
  - Product use in unapproved indication [Unknown]
  - Blindness [Recovering/Resolving]

NARRATIVE: CASE EVENT DATE: 200605
